FAERS Safety Report 7543798-6 (Version None)
Quarter: 2011Q2

REPORT INFORMATION
  Report Type: 
  Country: None (occurrence: None)
  Receive Date: 20110613
  Receipt Date: 20110607
  Transmission Date: 20111010
  Serious: Yes (Death, Life-Threatening, Hospitalization, Other)
  Sender: FDA-Public Use
  Company Number: FR-PFIZER INC-2011087546

PATIENT
  Age: 67 Year
  Sex: Male

DRUGS (6)
  1. INDOMETHACIN [Suspect]
     Dosage: 75 MG, UNK
     Route: 048
     Dates: start: 20110111, end: 20110124
  2. NEXIUM [Concomitant]
  3. PIASCLEDINE [Concomitant]
  4. SULFASALAZINE [Suspect]
     Indication: ANKYLOSING SPONDYLITIS
     Dosage: DOSAGE PROGRESSIVELY INCREASED
     Route: 048
     Dates: start: 20110111, end: 20110124
  5. TENORDATE [Concomitant]
  6. PRAVASTATIN SODIUM [Concomitant]

REACTIONS (7)
  - HYPOXIC-ISCHAEMIC ENCEPHALOPATHY [None]
  - DYSPNOEA EXERTIONAL [None]
  - RESPIRATORY DISTRESS [None]
  - PULMONARY OEDEMA [None]
  - CARDIAC FAILURE [None]
  - HYPOXIA [None]
  - CARDIAC ARREST [None]
